FAERS Safety Report 6160200-X (Version None)
Quarter: 2009Q2

REPORT INFORMATION
  Report Type: 
  Country: None (occurrence: None)
  Receive Date: 20090420
  Receipt Date: 20090413
  Transmission Date: 20091009
  Serious: Yes (Hospitalization)
  Sender: FDA-Public Use
  Company Number: A0779432A

PATIENT
  Sex: Female
  Weight: 58 kg

DRUGS (6)
  1. SERETIDE [Suspect]
     Dosage: 1PUFF TWICE PER DAY
     Route: 055
     Dates: start: 20090224, end: 20090328
  2. FLUIMUCIL [Concomitant]
     Dates: start: 20090111
  3. MICARDIS [Concomitant]
     Dates: start: 20050101
  4. ANCORON [Concomitant]
     Dates: start: 20050101
  5. HYDROXYZINE HYDROCHLORIDE [Concomitant]
     Dates: start: 20070101
  6. OMEPRAZOLE [Concomitant]
     Dates: start: 20070101

REACTIONS (1)
  - HERPES VIRUS INFECTION [None]
